FAERS Safety Report 6127131-2 (Version None)
Quarter: 2009Q1

REPORT INFORMATION
  Report Type: 
  Country: None (occurrence: None)
  Receive Date: 20090320
  Receipt Date: 20090317
  Transmission Date: 20090719
  Serious: Yes (Hospitalization)
  Sender: FDA-Public Use
  Company Number: CH-PFIZER INC-2009185031

PATIENT

DRUGS (3)
  1. VIBRAMYCIN [Suspect]
     Indication: UTERINE INFLAMMATION
     Route: 048
     Dates: start: 20080818, end: 20080828
  2. AUGMENTIN [Suspect]
     Indication: UTERINE INFLAMMATION
     Route: 048
     Dates: start: 20080818, end: 20080828
  3. LAMPIT [Suspect]
     Indication: AMERICAN TRYPANOSOMIASIS
     Route: 048
     Dates: start: 20080806, end: 20080902

REACTIONS (7)
  - DIARRHOEA [None]
  - DRUG RASH WITH EOSINOPHILIA AND SYSTEMIC SYMPTOMS [None]
  - DYSPNOEA [None]
  - EOSINOPHILIA [None]
  - NAUSEA [None]
  - RASH MACULO-PAPULAR [None]
  - VOMITING [None]
